FAERS Safety Report 15928933 (Version 1)
Quarter: 2019Q1

REPORT INFORMATION
  Report Type: Spontaneous
  Country: GB (occurrence: GB)
  Receive Date: 20190206
  Receipt Date: 20190206
  Transmission Date: 20190417
  Serious: No
  Sender: FDA-Public Use
  Company Number: GB-B. BRAUN MEDICAL INC.-2062223

PATIENT
  Age: 70 Year
  Sex: Female
  Weight: 50.3 kg

DRUGS (17)
  1. PREDNISOLONE. [Concomitant]
     Active Substance: PREDNISOLONE
  2. CYCLIZINE [Concomitant]
     Active Substance: CYCLIZINE
  3. FOLIC ACID. [Concomitant]
     Active Substance: FOLIC ACID
  4. RAMIPRIL. [Concomitant]
     Active Substance: RAMIPRIL
  5. SALBUTAMOL [Concomitant]
     Active Substance: ALBUTEROL
  6. SODIUM DIHYDROGEN PHOSPHATE [Concomitant]
     Active Substance: SODIUM PHOSPHATE
  7. TINZAPARIN [Concomitant]
     Active Substance: TINZAPARIN
  8. SODIUM CHLORIDE INJECTION USP 0264-7800-09 [Suspect]
     Active Substance: SODIUM CHLORIDE
  9. VILANTEROL [Concomitant]
     Active Substance: VILANTEROL TRIFENATATE
  10. CLARITHROMYCIN. [Concomitant]
     Active Substance: CLARITHROMYCIN
  11. CEFOTAXIME [Concomitant]
     Active Substance: CEFOTAXIME SODIUM
  12. IPRATROPIUM [Concomitant]
     Active Substance: IPRATROPIUM
  13. PARACETAMOL [Concomitant]
     Active Substance: ACETAMINOPHEN
  14. ATORVASTATIN [Concomitant]
     Active Substance: ATORVASTATIN
  15. AMLODIPINE [Concomitant]
     Active Substance: AMLODIPINE BESYLATE
  16. LEVOFLOXACIN. [Concomitant]
     Active Substance: LEVOFLOXACIN
  17. UMECLIDINIUM [Concomitant]
     Active Substance: UMECLIDINIUM BROMIDE

REACTIONS (1)
  - Rash [None]
